FAERS Safety Report 6308833-1 (Version None)
Quarter: 2009Q3

REPORT INFORMATION
  Report Type: 
  Country: None (occurrence: None)
  Receive Date: 20090813
  Receipt Date: 20081230
  Transmission Date: 20100115
  Serious: Yes (Disabling)
  Sender: FDA-Public Use
  Company Number: US-ALLERGAN-0810963US

PATIENT
  Age: 64 Year
  Sex: Female
  Weight: 77.098 kg

DRUGS (4)
  1. COMBIGAN [Suspect]
     Indication: GLAUCOMA
     Dosage: 1 GTT, BID
     Route: 047
     Dates: start: 20080219, end: 20080318
  2. HYZAAR [Concomitant]
     Indication: HYPERTENSION
     Dosage: UNK, QD
     Route: 048
  3. SIMVASTATIN [Concomitant]
     Indication: BLOOD CHOLESTEROL INCREASED
     Dosage: 20 MG, QD
     Route: 048
  4. XALATAN [Concomitant]
     Indication: GLAUCOMA
     Dosage: 1 GTT, QHS
     Route: 047

REACTIONS (8)
  - ALOPECIA [None]
  - ASTHENIA [None]
  - DYSPNOEA [None]
  - HEADACHE [None]
  - HEART RATE IRREGULAR [None]
  - LETHARGY [None]
  - ONYCHOCLASIS [None]
  - SKIN HYPERPIGMENTATION [None]
